FAERS Safety Report 13456059 (Version 2)
Quarter: 2017Q3

REPORT INFORMATION
  Report Type: Spontaneous
  Country: CI (occurrence: CI)
  Receive Date: 20170418
  Receipt Date: 20170905
  Transmission Date: 20171127
  Serious: Yes (Death, Hospitalization)
  Sender: FDA-Public Use
  Company Number: CI-PFIZER INC-2017117565

PATIENT
  Age: 32 Year
  Sex: Female

DRUGS (1)
  1. ARTOTEC [Suspect]
     Active Substance: DICLOFENAC SODIUM\MISOPROSTOL
     Indication: ABORTION
     Dosage: 75 MG/200 MCG, ONE TABLET PER DAY
     Route: 048
     Dates: start: 201702, end: 201702

REACTIONS (2)
  - Intentional product misuse [Fatal]
  - Abdominal pain [Fatal]

NARRATIVE: CASE EVENT DATE: 2017
